FAERS Safety Report 4787165-7 (Version None)
Quarter: 2005Q4

REPORT INFORMATION
  Report Type: 
  Country: None (occurrence: None)
  Receive Date: 20051004
  Receipt Date: 20050923
  Transmission Date: 20060501
  Serious: Yes (Hospitalization)
  Sender: FDA-Public Use
  Company Number: DK-MERCK-0509DNK00022

PATIENT
  Age: 58 Year
  Sex: Female

DRUGS (2)
  1. VIOXX [Suspect]
     Indication: MUSCULOSKELETAL PAIN
     Route: 048
     Dates: start: 20000501, end: 20020901
  2. VIOXX [Suspect]
     Route: 048
     Dates: start: 20040101, end: 20041201

REACTIONS (2)
  - FATIGUE [None]
  - MYOCARDIAL INFARCTION [None]
